FAERS Safety Report 11503959 (Version 1)
Quarter: 2015Q3

REPORT INFORMATION
  Report Type: Spontaneous
  Country: US (occurrence: US)
  Receive Date: 20150914
  Receipt Date: 20150914
  Transmission Date: 20151125
  Serious: No
  Sender: FDA-Public Use
  Company Number: US-CELGENEUS-USA-2015080928

PATIENT
  Sex: Female

DRUGS (14)
  1. ESTRACE [Concomitant]
     Active Substance: ESTRADIOL
     Route: 065
  2. PREMARIN [Concomitant]
     Active Substance: ESTROGENS, CONJUGATED
     Route: 065
  3. FENTANYL. [Concomitant]
     Active Substance: FENTANYL
     Route: 065
  4. GABAPENTIN. [Concomitant]
     Active Substance: GABAPENTIN
     Route: 065
  5. FUROSEMIDE. [Concomitant]
     Active Substance: FUROSEMIDE
     Route: 065
  6. RANEXA [Concomitant]
     Active Substance: RANOLAZINE
     Route: 065
  7. OTEZLA [Suspect]
     Active Substance: APREMILAST
     Indication: PSORIATIC ARTHROPATHY
     Dosage: 60 MILLIGRAM
     Route: 048
     Dates: start: 20141227, end: 201506
  8. ASPIRIN. [Concomitant]
     Active Substance: ASPIRIN
     Route: 065
  9. LORATADINE. [Concomitant]
     Active Substance: LORATADINE
     Route: 065
  10. METOPROLOL [Concomitant]
     Active Substance: METOPROLOL
     Route: 065
  11. CLOPIDOGREL [Concomitant]
     Active Substance: CLOPIDOGREL BISULFATE
     Route: 065
  12. ALBUTEROL. [Concomitant]
     Active Substance: ALBUTEROL
     Route: 065
  13. DIAZEPAM. [Concomitant]
     Active Substance: DIAZEPAM
     Route: 065
  14. POTASSIUM CHLORIDE. [Concomitant]
     Active Substance: POTASSIUM CHLORIDE
     Route: 065

REACTIONS (1)
  - Drug ineffective [Recovered/Resolved]

NARRATIVE: CASE EVENT DATE: 2015
